FAERS Safety Report 12870595 (Version 1)
Quarter: 2016Q4

REPORT INFORMATION
  Report Type: Spontaneous
  Country: FR (occurrence: FR)
  Receive Date: 20161021
  Receipt Date: 20161021
  Transmission Date: 20170207
  Serious: Yes (Other)
  Sender: FDA-Public Use
  Company Number: FR-PFIZER INC-2016481318

PATIENT
  Age: 65 Year
  Sex: Male

DRUGS (10)
  1. AMIKACIN MYLAN [Suspect]
     Active Substance: AMIKACIN
     Indication: URINARY TRACT INFECTION
     Dosage: 2 G, 1X/DAY
     Route: 042
     Dates: start: 20160915, end: 20160917
  2. IBUPROFENE [Concomitant]
     Active Substance: IBUPROFEN
     Dosage: UNK
     Dates: start: 20160827
  3. CEFTRIAXONE. [Concomitant]
     Active Substance: CEFTRIAXONE
     Dosage: UNK
     Dates: start: 20160827, end: 201609
  4. PARACETAMOL [Concomitant]
     Active Substance: ACETAMINOPHEN
     Dosage: UNK
     Dates: start: 20160827
  5. AUGMENTIN [Concomitant]
     Active Substance: AMOXICILLIN\CLAVULANATE POTASSIUM
     Dosage: UNK
     Dates: start: 20160827
  6. ZYVOXID [Suspect]
     Active Substance: LINEZOLID
     Indication: INFECTION
     Dosage: 600 MG, 1X/DAY
     Route: 048
     Dates: start: 20160915, end: 20160916
  7. PIPERACILLIN AND TAZOBACTAM [Suspect]
     Active Substance: PIPERACILLIN SODIUM\TAZOBACTAM SODIUM
     Indication: URINARY TRACT INFECTION
     Dosage: 4 G, 1X/DAY
     Route: 042
     Dates: start: 20160913, end: 20160921
  8. VIMPAT [Concomitant]
     Active Substance: LACOSAMIDE
     Dosage: UNK
     Dates: start: 20160827
  9. KETOPROFENE /00321701/ [Concomitant]
     Active Substance: KETOPROFEN
     Dosage: UNK
     Dates: start: 20160828
  10. DEPAKINE /00228501/ [Concomitant]
     Active Substance: VALPROIC ACID
     Dosage: UNK
     Dates: start: 20160827

REACTIONS (1)
  - Nephropathy [Recovered/Resolved]

NARRATIVE: CASE EVENT DATE: 20160918
